FAERS Safety Report 9977029 (Version 1)
Quarter: 2014Q1

REPORT INFORMATION
  Report Type: Report from Study
  Country: US (occurrence: US)
  Receive Date: 20140306
  Receipt Date: 20140306
  Transmission Date: 20141002
  Serious: No
  Sender: FDA-Public Use
  Company Number: US-ABBVIE-13P-163-1168295-00

PATIENT
  Age: 69 Year
  Sex: Female
  Weight: 106.69 kg

DRUGS (11)
  1. HUMIRA [Suspect]
     Indication: RHEUMATOID ARTHRITIS
     Dates: start: 201307
  2. HUMIRA [Suspect]
     Indication: PSORIATIC ARTHROPATHY
  3. DEXAMETHASONE [Concomitant]
     Indication: PRODUCT USED FOR UNKNOWN INDICATION
  4. FOLIC ACID [Concomitant]
     Indication: PRODUCT USED FOR UNKNOWN INDICATION
  5. HYDROCHLOROTHIAZIDE [Concomitant]
     Indication: HYPERTENSION
  6. LEVOTHYROXINE [Concomitant]
     Indication: HYPOTHYROIDISM
  7. METOPROLOL [Concomitant]
     Indication: HYPERTENSION
     Dates: end: 201310
  8. METOPROLOL [Concomitant]
     Indication: HYPERTENSION
     Dates: start: 201310
  9. TRAMADOL [Concomitant]
     Indication: MUSCLE SPASMS
  10. CYCLOBENZAPRINE [Concomitant]
     Indication: MUSCLE SPASMS
  11. BENADRYL [Concomitant]
     Indication: PRODUCT USED FOR UNKNOWN INDICATION

REACTIONS (4)
  - Hair texture abnormal [Not Recovered/Not Resolved]
  - Hair texture abnormal [Not Recovered/Not Resolved]
  - Alopecia [Recovering/Resolving]
  - Hypertension [Recovered/Resolved]
